FAERS Safety Report 5563520-2 (Version None)
Quarter: 2007Q4

REPORT INFORMATION
  Report Type: 
  Country: None (occurrence: None)
  Receive Date: 20071217
  Receipt Date: 20070605
  Transmission Date: 20080405
  Serious: No
  Sender: FDA-Public Use
  Company Number: US-ASTRAZENECA-2007UW13561

PATIENT
  Age: 43 Year
  Sex: Female
  Weight: 63.5 kg

DRUGS (9)
  1. CRESTOR [Suspect]
     Indication: BLOOD CHOLESTEROL INCREASED
     Route: 048
  2. CRESTOR [Suspect]
     Route: 048
  3. LEXAPRO [Concomitant]
  4. ACIPHEX [Concomitant]
  5. OXYBUTYNIN CHLORIDE [Concomitant]
  6. GABAPENTIN [Concomitant]
  7. LYRICA [Concomitant]
  8. ALLERX [Concomitant]
  9. LUNESTA [Concomitant]

REACTIONS (2)
  - SOMNOLENCE [None]
  - THERAPEUTIC RESPONSE UNEXPECTED [None]
